FAERS Safety Report 24875499 (Version 1)
Quarter: 2025Q1

REPORT INFORMATION
  Report Type: Spontaneous
  Country: US (occurrence: US)
  Receive Date: 20250122
  Receipt Date: 20250122
  Transmission Date: 20250409
  Serious: Yes (Death, Hospitalization, Other)
  Sender: ORGANON
  Company Number: US-ORGANON-O2501USA002186

PATIENT
  Age: 87 Year
  Sex: Female

DRUGS (5)
  1. COZAAR [Suspect]
     Active Substance: LOSARTAN POTASSIUM
     Route: 048
  2. BACLOFEN [Suspect]
     Active Substance: BACLOFEN
     Route: 048
  3. DULOXETINE [Suspect]
     Active Substance: DULOXETINE
     Route: 048
  4. ALPRAZOLAM [Suspect]
     Active Substance: ALPRAZOLAM
     Route: 048
  5. AMITRIPTYLINE [Suspect]
     Active Substance: AMITRIPTYLINE
     Route: 048

REACTIONS (1)
  - Suspected suicide [Fatal]
